FAERS Safety Report 4935946-9 (Version None)
Quarter: 2006Q1

REPORT INFORMATION
  Report Type: 
  Country: None (occurrence: None)
  Receive Date: 20060307
  Receipt Date: 20050727
  Transmission Date: 20060701
  Serious: No
  Sender: FDA-Public Use
  Company Number: US-GLAXOSMITHKLINE-A0567924A

PATIENT
  Age: 52 Year
  Sex: Female
  Weight: 116.8 kg

DRUGS (10)
  1. REQUIP [Suspect]
     Indication: RESTLESS LEGS SYNDROME
     Dosage: .5MG PER DAY
     Route: 048
     Dates: start: 20050701
  2. LEVO-THYROXIN [Concomitant]
  3. ATENOLOL [Concomitant]
  4. ASPIRIN [Concomitant]
  5. B12 [Concomitant]
  6. MEVACOR [Concomitant]
  7. FUROSEMIDE [Concomitant]
  8. PRILOSEC [Concomitant]
  9. K-DUR 10 [Concomitant]
  10. LISINOPRIL [Concomitant]

REACTIONS (4)
  - CONFUSIONAL STATE [None]
  - FEELING ABNORMAL [None]
  - HEADACHE [None]
  - LETHARGY [None]
